FAERS Safety Report 13091982 (Version 1)
Quarter: 2017Q1

REPORT INFORMATION
  Report Type: Spontaneous
  Country: GB (occurrence: GB)
  Receive Date: 20170106
  Receipt Date: 20170106
  Transmission Date: 20170428
  Serious: Yes (Other)
  Sender: FDA-Public Use
  Company Number: GB-BAYER-2017-000790

PATIENT
  Age: 58 Year
  Sex: Female
  Weight: 63 kg

DRUGS (10)
  1. CODEINE PHOSPHATE [Concomitant]
     Active Substance: CODEINE PHOSPHATE
     Indication: PAIN
     Dosage: UNK UNK, PRN
     Dates: start: 20161129
  2. DIAZEPAM. [Concomitant]
     Active Substance: DIAZEPAM
     Indication: MUSCLE SPASMS
     Dosage: 1 DF, BID
     Dates: start: 20161129
  3. DIPROSALIC [Concomitant]
     Active Substance: BETAMETHASONE DIPROPIONATE
     Dosage: 1 DF, BID
     Dates: start: 20161202, end: 20161209
  4. CO-AMOXICLAV [Concomitant]
     Active Substance: AMOXICILLIN\CLAVULANIC ACID
     Dosage: 1 DF, TID
     Dates: start: 20161214, end: 20161221
  5. DOVOBET [Concomitant]
     Active Substance: BETAMETHASONE\CALCIPOTRIENE
     Dosage: 1 DF, QD
     Dates: start: 20161202, end: 20161209
  6. LORATADINE. [Suspect]
     Active Substance: LORATADINE
     Dosage: UNK
     Dates: start: 20161220
  7. ANUSOL-HC [BENZYL,BI+,HYDROCORT,MYROXYL BALSAM VAR. PEREIR BALSAM, [Concomitant]
     Dosage: 1 DF, QD
     Dates: start: 20161202, end: 20161209
  8. CETRABEN [LIGHT LIQUID PARAFFIN,WHITE SOFT PARAFFIN] [Concomitant]
     Dosage: 1 DF, PRN
     Dates: start: 20161202, end: 20161209
  9. DERMOL [BENZALK CHLORIDE,CHLORHEXID HCL,ISOPROPYL MYRISTATE,PARAFF [Concomitant]
     Dosage: UNK
     Dates: start: 20161202, end: 20161209
  10. NITROFURANTOIN. [Concomitant]
     Active Substance: NITROFURANTOIN
     Dosage: 1 DF, QID
     Dates: start: 20161202, end: 20161209

REACTIONS (3)
  - Aggression [Recovered/Resolved]
  - Urticaria [Recovered/Resolved]
  - Hyperventilation [Recovered/Resolved]

NARRATIVE: CASE EVENT DATE: 20161220
